FAERS Safety Report 6439759-0 (Version None)
Quarter: 2009Q4

REPORT INFORMATION
  Report Type: 
  Country: None (occurrence: None)
  Receive Date: 20091113
  Receipt Date: 20091110
  Transmission Date: 20100525
  Serious: Yes (Hospitalization)
  Sender: FDA-Public Use
  Company Number: DE-EISAI INC.-E2020-05521-SPO-DE

PATIENT
  Sex: Male

DRUGS (9)
  1. ARICEPT [Suspect]
     Indication: DRUG USE FOR UNKNOWN INDICATION
     Route: 048
     Dates: start: 20090729, end: 20090925
  2. BELOC-ZOK [Interacting]
     Indication: DRUG USE FOR UNKNOWN INDICATION
     Route: 048
     Dates: start: 20090101, end: 20090925
  3. ASPIRIN [Concomitant]
     Route: 048
  4. SIMVASTATIN [Concomitant]
     Route: 048
  5. ZOLPIDEM [Concomitant]
     Route: 048
     Dates: start: 20090101
  6. DIPIPERON [Concomitant]
     Route: 048
     Dates: start: 20090907, end: 20090925
  7. DIPIPERON [Concomitant]
     Dates: start: 20090926, end: 20091002
  8. RISPERDAL [Concomitant]
     Route: 048
     Dates: start: 20090903, end: 20090925
  9. RISPERDAL [Concomitant]
     Dates: start: 20090926, end: 20091002

REACTIONS (2)
  - DRUG INTERACTION [None]
  - SINUS BRADYCARDIA [None]
